FAERS Safety Report 4546147-0 (Version None)
Quarter: 2005Q1

REPORT INFORMATION
  Report Type: 
  Country: None (occurrence: None)
  Receive Date: 20050105
  Receipt Date: 20050105
  Transmission Date: 20050727
  Serious: No
  Sender: FDA-Public Use
  Company Number: None

PATIENT
  Age: 81 Year
  Sex: Female
  Weight: 67 kg

DRUGS (7)
  1. NORVASC [Suspect]
     Indication: HYPERTENSION
     Dosage: 2.5MG  Q6H PRN ORAL
     Route: 048
     Dates: start: 20041225, end: 20041225
  2. LR [Concomitant]
  3. PROMETHAZINE [Concomitant]
  4. MORPHINE SULFATE [Concomitant]
  5. PROTONIX [Concomitant]
  6. LOSARTAN [Concomitant]
  7. LEVOTHYROXINE SODIUM [Concomitant]

REACTIONS (4)
  - BLOOD PRESSURE INCREASED [None]
  - HYPOAESTHESIA ORAL [None]
  - OBSTRUCTIVE AIRWAYS DISORDER [None]
  - SWELLING FACE [None]
